FAERS Safety Report 7017780-1 (Version None)
Quarter: 2010Q3

REPORT INFORMATION
  Report Type: 
  Country: None (occurrence: None)
  Receive Date: 20100928
  Receipt Date: 20100917
  Transmission Date: 20110219
  Serious: Yes (Other)
  Sender: FDA-Public Use
  Company Number: US-ELI_LILLY_AND_COMPANY-US201009005262

PATIENT
  Sex: Female
  Weight: 87.982 kg

DRUGS (19)
  1. BYETTA [Suspect]
     Indication: GESTATIONAL DIABETES
     Dosage: 5 UG, 2/D
     Route: 058
  2. BYETTA [Suspect]
     Dosage: 10 UG, 2/D
     Route: 058
     Dates: start: 20100916
  3. METFORMIN [Concomitant]
     Dosage: 500 MG, 3/D
     Route: 048
  4. IBUPROFEN [Concomitant]
     Dosage: 800 MG, 3/D
     Route: 048
  5. METOPROLOL TARTRATE [Concomitant]
     Dosage: 100 MG, 2/D
     Route: 048
  6. NIFEDIPINE [Concomitant]
     Dosage: 60 MG, DAILY (1/D)
     Route: 048
  7. CLONIDINE [Concomitant]
     Dosage: 0.2 MG, 3/D
     Route: 048
  8. OMEPRAZOLE [Concomitant]
     Dosage: UNK, DAILY (1/D)
     Route: 048
  9. HYDROCODONE BITARTRATE AND ACETAMINOPHEN [Concomitant]
     Dosage: UNK, 3/D
     Route: 048
  10. XANAX [Concomitant]
     Dosage: 0.5 D/F, 3/D
     Route: 048
  11. FOLIC ACID [Concomitant]
     Dosage: 1 MG, DAILY (1/D)
     Route: 048
  12. FLOVENT [Concomitant]
     Dosage: UNK, DAILY (1/D)
  13. LORTADINE [Concomitant]
     Dosage: 10 MG, DAILY (1/D)
     Route: 048
  14. LISINOPRIL [Concomitant]
     Dosage: 20 MG, DAILY (1/D)
     Route: 048
  15. DIPHENOXYLATE HCL + ATROPINE SULFATE [Concomitant]
     Dosage: UNK, 2/D
     Route: 048
  16. ASPIRIN [Concomitant]
     Dosage: UNK, DAILY (1/D)
     Route: 048
  17. MELATONIN [Concomitant]
     Dosage: UNK, DAILY (1/D)
     Route: 048
  18. EPIPEN [Concomitant]
     Dosage: UNK, AS NEEDED
  19. DEPO-ESTRADIOL [Concomitant]
     Dosage: UNK, AS NEEDED

REACTIONS (9)
  - BLOOD GLUCOSE DECREASED [None]
  - BLOOD GLUCOSE INCREASED [None]
  - DECREASED APPETITE [None]
  - DRUG INEFFECTIVE [None]
  - HYPERTENSION [None]
  - LOSS OF CONSCIOUSNESS [None]
  - MENTAL STATUS CHANGES [None]
  - TREMOR [None]
  - WEIGHT INCREASED [None]
